FAERS Safety Report 4964918-3 (Version None)
Quarter: 2006Q2

REPORT INFORMATION
  Report Type: 
  Country: None (occurrence: None)
  Receive Date: 20060403
  Receipt Date: 20060320
  Transmission Date: 20061013
  Serious: Yes (Hospitalization)
  Sender: FDA-Public Use
  Company Number: 221251

PATIENT
  Age: 61 Year
  Sex: Male

DRUGS (4)
  1. RITUXIMAB(RITUXIMAB) CONC FOR SOLUTION FOR INFUSION [Suspect]
     Indication: NON-HODGKIN'S LYMPHOMA
     Dosage: 660 MG, 1/WEEK, INTRAVENOUS
     Route: 042
     Dates: start: 20051122, end: 20051213
  2. DIAZEPAM [Concomitant]
  3. OMEPRAZOLE [Concomitant]
  4. DIAZEPAM [Concomitant]

REACTIONS (10)
  - BLOOD GLUCOSE INCREASED [None]
  - CATARACT [None]
  - HAEMATOCRIT DECREASED [None]
  - LABORATORY TEST ABNORMAL [None]
  - LABORATORY TEST INTERFERENCE [None]
  - MENINGITIS [None]
  - ORAL INFECTION [None]
  - PLATELET COUNT INCREASED [None]
  - PROTEIN URINE [None]
  - URINE KETONE BODY PRESENT [None]
